FAERS Safety Report 12092325 (Version 1)
Quarter: 2016Q1

REPORT INFORMATION
  Report Type: Spontaneous
  Country: US (occurrence: None)
  Receive Date: 20160218
  Receipt Date: 20160218
  Transmission Date: 20160526
  Serious: Yes (Disabling)
  Sender: FDA-Public Use
  Company Number: None

PATIENT
  Age: 60 Year
  Sex: Female
  Weight: 64.41 kg

DRUGS (10)
  1. MOISTUR-EYES [Concomitant]
  2. LEVOCETIRIZINE [Concomitant]
     Active Substance: LEVOCETIRIZINE
  3. SINGULAIR [Concomitant]
     Active Substance: MONTELUKAST SODIUM
  4. SYNTHROID [Concomitant]
     Active Substance: LEVOTHYROXINE SODIUM
  5. BEPREVE EYE DROPS [Concomitant]
  6. CALCIUM [Concomitant]
     Active Substance: CALCIUM
  7. VYVANSE [Suspect]
     Active Substance: LISDEXAMFETAMINE DIMESYLATE
     Indication: ATTENTION DEFICIT/HYPERACTIVITY DISORDER
  8. MULTILE VITAMINS [Concomitant]
  9. WELLBUTRIN [Concomitant]
     Active Substance: BUPROPION HYDROCHLORIDE
  10. RESTASIS [Concomitant]
     Active Substance: CYCLOSPORINE

REACTIONS (9)
  - Change in sustained attention [None]
  - Cataract [None]
  - Road traffic accident [None]
  - Clumsiness [None]
  - Blood pressure increased [None]
  - Musculoskeletal disorder [None]
  - Visual field defect [None]
  - Vision blurred [None]
  - Dry eye [None]
